FAERS Safety Report 6457161-2 (Version None)
Quarter: 2009Q4

REPORT INFORMATION
  Report Type: 
  Country: None (occurrence: None)
  Receive Date: 20091125
  Receipt Date: 20091118
  Transmission Date: 20100525
  Serious: Yes (Other)
  Sender: FDA-Public Use
  Company Number: FR-JNJFOC-20091005958

PATIENT
  Age: 39 Year
  Sex: Female
  Weight: 64 kg

DRUGS (3)
  1. REMICADE [Suspect]
     Dosage: 7TH INFUSION
     Route: 042
     Dates: end: 20090917
  2. REMICADE [Suspect]
     Route: 042
     Dates: end: 20090917
  3. REMICADE [Suspect]
     Indication: ANKYLOSING SPONDYLITIS
     Dosage: 6 MG/KG
     Route: 042
     Dates: end: 20090917

REACTIONS (2)
  - DIZZINESS [None]
  - TRANSIENT GLOBAL AMNESIA [None]
